FAERS Safety Report 24745012 (Version 1)
Quarter: 2024Q4

REPORT INFORMATION
  Report Type: Spontaneous
  Country: US (occurrence: US)
  Receive Date: 20241217
  Receipt Date: 20241217
  Transmission Date: 20250114
  Serious: Yes (Other)
  Sender: PFIZER
  Company Number: US-PFIZER INC-202400323816

PATIENT
  Age: 55 Year
  Sex: Female

DRUGS (1)
  1. NURTEC ODT [Suspect]
     Active Substance: RIMEGEPANT SULFATE
     Indication: Migraine
     Dosage: UNK
     Dates: start: 202312, end: 202412

REACTIONS (2)
  - Precancerous condition [Unknown]
  - Tongue disorder [Unknown]

NARRATIVE: CASE EVENT DATE: 20241201
